FAERS Safety Report 18777832 (Version 1)
Quarter: 2021Q1

REPORT INFORMATION
  Report Type: Spontaneous
  Country: US (occurrence: US)
  Receive Date: 20210122
  Receipt Date: 20210122
  Transmission Date: 20210419
  Serious: No
  Sender: FDA-Public Use
  Company Number: 2020SGN03280

PATIENT
  Sex: Female

DRUGS (2)
  1. TUKYSA [Suspect]
     Active Substance: TUCATINIB
     Dosage: 50 MG, UNK
     Route: 048
  2. TUKYSA [Suspect]
     Active Substance: TUCATINIB
     Indication: HER2 POSITIVE BREAST CANCER

REACTIONS (11)
  - Erythema [Unknown]
  - Neuropathy peripheral [Not Recovered/Not Resolved]
  - Insomnia [Unknown]
  - Headache [Unknown]
  - Palmar-plantar erythrodysaesthesia syndrome [Unknown]
  - Vomiting [Recovered/Resolved]
  - Diarrhoea [Not Recovered/Not Resolved]
  - Nausea [Not Recovered/Not Resolved]
  - Tenderness [Unknown]
  - Fatigue [Unknown]
  - Skin exfoliation [Unknown]
